FAERS Safety Report 23197223 (Version 1)
Quarter: 2023Q4

REPORT INFORMATION
  Report Type: Spontaneous
  Country: US (occurrence: US)
  Receive Date: 20231117
  Receipt Date: 20231117
  Transmission Date: 20240109
  Serious: Yes (Other)
  Sender: FDA-Public Use
  Company Number: US-002147023-NVSC2023US244605

PATIENT

DRUGS (1)
  1. LUTATHERA [Suspect]
     Active Substance: LUTETIUM OXODOTREOTIDE LU-177
     Indication: Neoplasm malignant
     Dosage: UNK
     Route: 065
     Dates: start: 20230727, end: 20230921

REACTIONS (2)
  - Illness [Unknown]
  - Laboratory test abnormal [Unknown]
